FAERS Safety Report 4631048-X (Version None)
Quarter: 2005Q2

REPORT INFORMATION
  Report Type: 
  Country: None (occurrence: None)
  Receive Date: 20050406
  Receipt Date: 20050406
  Transmission Date: 20051028
  Serious: No
  Sender: FDA-Public Use
  Company Number: None

PATIENT
  Sex: Female
  Weight: 64.4108 kg

DRUGS (2)
  1. ATENOLOL [Suspect]
     Indication: MITRAL VALVE DISEASE
     Dosage: 25 MG 1/2 PO BID
     Route: 048
     Dates: start: 20001001
  2. ATENOLOL [Suspect]
     Indication: PALPITATIONS
     Dosage: 25 MG 1/2 PO BID
     Route: 048
     Dates: start: 20001001

REACTIONS (4)
  - ABDOMINAL DISCOMFORT [None]
  - DIZZINESS [None]
  - PALPITATIONS [None]
  - PHARMACEUTICAL PRODUCT COMPLAINT [None]
